FAERS Safety Report 15856702 (Version 3)
Quarter: 2020Q1

REPORT INFORMATION
  Report Type: Spontaneous
  Country: IT (occurrence: IT)
  Receive Date: 20190123
  Receipt Date: 20200227
  Transmission Date: 20200409
  Serious: Yes (Hospitalization, Other)
  Sender: FDA-Public Use
  Company Number: IT-AUROBINDO-AUR-APL-2019-002835

PATIENT
  Age: 14 Year
  Sex: Male
  Weight: 66 kg

DRUGS (2)
  1. CLARITHROMYCIN. [Concomitant]
     Active Substance: CLARITHROMYCIN
     Indication: PRODUCT USED FOR UNKNOWN INDICATION
     Dosage: UNK (PRESCRIBED FOR 14 DAYS WITHOUT ANY ADVERSE EFFECTS)
     Route: 065
  2. LEVOFLOXACIN. [Suspect]
     Active Substance: LEVOFLOXACIN
     Indication: RESPIRATORY TRACT INFECTION
     Dosage: 500 MILLIGRAM, ONCE A DAY (ONE WEEK)
     Route: 065
     Dates: start: 20161231, end: 20170103

REACTIONS (15)
  - Diplopia [Recovered/Resolved]
  - Muscular weakness [Unknown]
  - Idiopathic intracranial hypertension [Recovered/Resolved]
  - Myalgia [Unknown]
  - Arthralgia [Recovered/Resolved]
  - VIth nerve paralysis [Recovered/Resolved]
  - Headache [Recovered/Resolved]
  - Somnolence [Recovered/Resolved]
  - Retinal vascular disorder [Unknown]
  - Papilloedema [Recovered/Resolved]
  - Pneumonia mycoplasmal [Unknown]
  - Vision blurred [Unknown]
  - Hyperaemia [Unknown]
  - Eye movement disorder [Recovered/Resolved]
  - Visual field defect [Unknown]

NARRATIVE: CASE EVENT DATE: 201701
